FAERS Safety Report 16037314 (Version 1)
Quarter: 2019Q1

REPORT INFORMATION
  Report Type: Spontaneous
  Country: MY (occurrence: MY)
  Receive Date: 20190305
  Receipt Date: 20190305
  Transmission Date: 20190418
  Serious: Yes (Other)
  Sender: FDA-Public Use
  Company Number: MY-BRISTOL-MYERS SQUIBB COMPANY-BMS-2018-069850

PATIENT
  Age: 70 Year
  Sex: Male

DRUGS (1)
  1. ELIQUIS [Suspect]
     Active Substance: APIXABAN
     Indication: CEREBROVASCULAR ACCIDENT PROPHYLAXIS
     Route: 065

REACTIONS (2)
  - Haemorrhage intracranial [Unknown]
  - Cerebrovascular accident [Unknown]
